FAERS Safety Report 12169616 (Version 1)
Quarter: 2016Q1

REPORT INFORMATION
  Report Type: Spontaneous
  Country: US (occurrence: US)
  Receive Date: 20160310
  Receipt Date: 20160310
  Transmission Date: 20160526
  Serious: No
  Sender: FDA-Public Use
  Company Number: ALCN2016US001820

PATIENT
  Sex: Female

DRUGS (1)
  1. NAPHCON A [Suspect]
     Active Substance: NAPHAZOLINE HYDROCHLORIDE\PHENIRAMINE MALEATE
     Indication: HYPERSENSITIVITY
     Dosage: UNK GTT, UNK
     Route: 047
     Dates: start: 20160306, end: 20160307

REACTIONS (2)
  - Incorrect dose administered [Unknown]
  - Dizziness [Not Recovered/Not Resolved]

NARRATIVE: CASE EVENT DATE: 20160306
